FAERS Safety Report 17944489 (Version 2)
Quarter: 2020Q3

REPORT INFORMATION
  Report Type: Report from Study
  Country: JP (occurrence: JP)
  Receive Date: 20200625
  Receipt Date: 20200929
  Transmission Date: 20201103
  Serious: Yes (Hospitalization, Other)
  Sender: FDA-Public Use
  Company Number: JP-AMGEN-JPNCT2019195412

PATIENT
  Age: 60 Year
  Sex: Male

DRUGS (45)
  1. CARVEDILOL. [Concomitant]
     Active Substance: CARVEDILOL
     Dosage: 2.5 MG
     Route: 048
  2. FUROSEMIDE. [Concomitant]
     Active Substance: FUROSEMIDE
     Dosage: 20 MG
     Route: 048
  3. VITAMEDIN [Concomitant]
     Active Substance: CYANOCOBALAMIN\PYRIDOXINE HYDROCHLORIDE\THIAMINE
     Indication: HYPOVITAMINOSIS
     Dosage: 3 DOSAGE FORM
     Route: 048
     Dates: end: 20170622
  4. KEFRAL [Concomitant]
     Active Substance: CEFACLOR
     Indication: PRODUCT USED FOR UNKNOWN INDICATION
     Dosage: 500 MG
     Route: 048
     Dates: start: 20170123, end: 20170125
  5. ARGAMATE [Concomitant]
     Active Substance: CALCIUM POLYSTYRENE SULFONATE
     Dosage: 50 G (RENAL FUNCTION AGGRAVATED)
     Route: 048
     Dates: start: 20170512, end: 20170622
  6. CALCICOL [Concomitant]
     Active Substance: CALCIUM GLUCONATE
     Dosage: 40 ML
     Route: 065
     Dates: start: 20170403, end: 20170403
  7. SULBACILLIN [Concomitant]
     Active Substance: AMPICILLIN SODIUM\SULBACTAM SODIUM
     Indication: PRODUCT USED FOR UNKNOWN INDICATION
     Dosage: 3.0 G
     Route: 042
     Dates: start: 20170327, end: 20170329
  8. FUROSEMIDE. [Concomitant]
     Active Substance: FUROSEMIDE
     Indication: CARDIAC FAILURE CHRONIC
     Dosage: 20 MG
     Route: 048
  9. ARGAMATE [Concomitant]
     Active Substance: CALCIUM POLYSTYRENE SULFONATE
     Indication: RENAL IMPAIRMENT
     Dosage: 75 G (RENAL IMPAIRMENT)
     Route: 048
     Dates: start: 20170421, end: 20170511
  10. ARGAMATE [Concomitant]
     Active Substance: CALCIUM POLYSTYRENE SULFONATE
     Dosage: 25 G (RENAL FUNCTION AGGRAVATED)
     Route: 048
     Dates: start: 20170623
  11. CINACALCET. [Suspect]
     Active Substance: CINACALCET
     Indication: HYPERCALCAEMIA
     Dosage: 25 MG, QD (UNEQUAL DOSE)
     Route: 048
     Dates: start: 20160930, end: 20170322
  12. FEBURIC [Concomitant]
     Active Substance: FEBUXOSTAT
     Indication: HYPERURICAEMIA
     Dosage: 10 MG
     Route: 048
     Dates: start: 20161125
  13. CALCICOL [Concomitant]
     Active Substance: CALCIUM GLUCONATE
     Dosage: 20 ML
     Route: 065
     Dates: start: 20170331, end: 20170402
  14. CALCICOL [Concomitant]
     Active Substance: CALCIUM GLUCONATE
     Dosage: 20 ML
     Route: 065
     Dates: start: 20170404, end: 20170405
  15. TEICOPLANIN [Concomitant]
     Active Substance: TEICOPLANIN
     Dosage: 200 MG, EVERY 3 DAYS
     Route: 065
     Dates: start: 20170404, end: 20170416
  16. ALFAROL [Concomitant]
     Active Substance: ALFACALCIDOL
     Indication: PRODUCT USED FOR UNKNOWN INDICATION
     Dosage: 1.0 UG
     Route: 048
     Dates: start: 20170330, end: 20170330
  17. ALFAROL [Concomitant]
     Active Substance: ALFACALCIDOL
     Dosage: 1.5 UG
     Route: 048
     Dates: start: 20170331, end: 20170412
  18. CARVEDILOL. [Concomitant]
     Active Substance: CARVEDILOL
     Indication: CARDIAC FAILURE CHRONIC
     Dosage: 2.5 MG
     Route: 048
  19. SPIRONOLACTONE. [Concomitant]
     Active Substance: SPIRONOLACTONE
     Indication: CARDIAC FAILURE CHRONIC
     Dosage: 50 MG
     Route: 048
     Dates: end: 20161125
  20. KREMEZIN [Concomitant]
     Active Substance: ACTIVATED CHARCOAL
     Indication: RENAL IMPAIRMENT
     Dosage: 6 G
     Route: 048
  21. MAGMITT [Concomitant]
     Active Substance: MAGNESIUM OXIDE
     Indication: CONSTIPATION
     Dosage: 500 MG
     Route: 048
     Dates: end: 20161125
  22. KREMEZIN [Concomitant]
     Active Substance: ACTIVATED CHARCOAL
     Dosage: 6 G
     Route: 048
  23. FOLIAMIN [Concomitant]
     Active Substance: FOLIC ACID
     Dosage: 10 MG
     Route: 048
  24. CELECOX [Concomitant]
     Active Substance: CELECOXIB
     Indication: PRODUCT USED FOR UNKNOWN INDICATION
     Dosage: 100 MG
     Route: 048
     Dates: start: 20170123, end: 20170125
  25. CEFAZOLIN SODIUM. [Concomitant]
     Active Substance: CEFAZOLIN SODIUM
     Indication: PRODUCT USED FOR UNKNOWN INDICATION
     Dosage: 1.0 G
     Route: 065
     Dates: start: 20170323, end: 20170324
  26. CALCICOL [Concomitant]
     Active Substance: CALCIUM GLUCONATE
     Dosage: 10 ML
     Route: 065
     Dates: start: 20170406, end: 20170407
  27. ALFAROL [Concomitant]
     Active Substance: ALFACALCIDOL
     Dosage: 3.0 UG
     Route: 048
     Dates: start: 20170413
  28. CINACALCET HCL [Suspect]
     Active Substance: CINACALCET HYDROCHLORIDE
     Dosage: 25 MILLIGRAM, QD
     Route: 048
     Dates: start: 20160930, end: 20170322
  29. NIFEDIPINE. [Concomitant]
     Active Substance: NIFEDIPINE
     Dosage: 80 MG (HYPERTENSION AGGRAVATED)
     Route: 048
     Dates: start: 20161126
  30. FOLIAMIN [Concomitant]
     Active Substance: FOLIC ACID
     Indication: FOLATE DEFICIENCY
     Dosage: 10 MG
     Route: 048
  31. ZOLEDRONIC ACID [Concomitant]
     Active Substance: ZOLEDRONIC ACID
     Indication: HYPERPARATHYROIDISM PRIMARY
     Dosage: 4 MG
     Route: 065
     Dates: end: 20170210
  32. CALCIUM LACTATE [Concomitant]
     Active Substance: CALCIUM LACTATE
     Dosage: 8.0 G
     Route: 048
     Dates: start: 20170403, end: 20170406
  33. CALCIUM LACTATE [Concomitant]
     Active Substance: CALCIUM LACTATE
     Dosage: 6.0 G
     Route: 048
     Dates: start: 20170428, end: 20170511
  34. CRAVIT [Concomitant]
     Active Substance: LEVOFLOXACIN
     Indication: PRODUCT USED FOR UNKNOWN INDICATION
     Dosage: 500 MG, QOD
     Route: 065
     Dates: start: 20170330, end: 20170409
  35. TEICOPLANIN [Concomitant]
     Active Substance: TEICOPLANIN
     Indication: PRODUCT USED FOR UNKNOWN INDICATION
     Dosage: 600 MG
     Route: 065
     Dates: start: 20170402, end: 20170403
  36. CINACALCET HCL [Suspect]
     Active Substance: CINACALCET HYDROCHLORIDE
     Indication: HYPERCALCAEMIA
     Dosage: 50 MILLIGRAM, BID
     Route: 048
     Dates: start: 20160930, end: 20170322
  37. NIFEDIPINE. [Concomitant]
     Active Substance: NIFEDIPINE
     Indication: HYPERTENSION
     Dosage: 60 MG (HYPERTENSION)
     Route: 048
     Dates: end: 20161125
  38. VITAMEDIN [Concomitant]
     Active Substance: CYANOCOBALAMIN\PYRIDOXINE HYDROCHLORIDE\THIAMINE
     Dosage: 2 DOSAGE FORM
     Route: 048
     Dates: start: 20170623
  39. CALONAL [Concomitant]
     Active Substance: ACETAMINOPHEN
     Indication: PRODUCT USED FOR UNKNOWN INDICATION
     Dosage: 500 MG
     Route: 048
     Dates: start: 20170325, end: 20170326
  40. CALCIUM LACTATE [Concomitant]
     Active Substance: CALCIUM LACTATE
     Indication: PRODUCT USED FOR UNKNOWN INDICATION
     Dosage: 2.0 G
     Route: 048
     Dates: start: 20170327, end: 20170328
  41. CALCIUM LACTATE [Concomitant]
     Active Substance: CALCIUM LACTATE
     Dosage: 4.0 G
     Route: 048
     Dates: start: 20170329, end: 20170402
  42. CALCIUM LACTATE [Concomitant]
     Active Substance: CALCIUM LACTATE
     Dosage: 12.0 G
     Route: 048
     Dates: start: 20170407, end: 20170427
  43. CALCICOL [Concomitant]
     Active Substance: CALCIUM GLUCONATE
     Indication: PRODUCT USED FOR UNKNOWN INDICATION
     Dosage: 10 ML
     Route: 065
     Dates: start: 20170328, end: 20170329
  44. CALCICOL [Concomitant]
     Active Substance: CALCIUM GLUCONATE
     Dosage: 60 ML
     Route: 065
     Dates: start: 20170330, end: 20170330
  45. FIRSTCIN [Concomitant]
     Active Substance: CEFOZOPRAN HYDROCHLORIDE
     Indication: PRODUCT USED FOR UNKNOWN INDICATION
     Dosage: 1.0 G
     Route: 065
     Dates: start: 20170329, end: 20170329

REACTIONS (7)
  - C-reactive protein increased [Recovered/Resolved]
  - Blood alkaline phosphatase increased [Not Recovered/Not Resolved]
  - Pyrexia [Recovered/Resolved]
  - Hypocalcaemia [Recovered/Resolved]
  - Hyperuricaemia [Recovering/Resolving]
  - Renal impairment [Not Recovered/Not Resolved]
  - Hypertension [Not Recovered/Not Resolved]

NARRATIVE: CASE EVENT DATE: 20161125
